FAERS Safety Report 7966209-5 (Version None)
Quarter: 2011Q4

REPORT INFORMATION
  Report Type: 
  Country: None (occurrence: None)
  Receive Date: 20111208
  Receipt Date: 20111129
  Transmission Date: 20120403
  Serious: No
  Sender: FDA-Public Use
  Company Number: US-BAYER-2011-116217

PATIENT
  Age: 76 Year
  Sex: Female
  Weight: 68 kg

DRUGS (6)
  1. ALEVE (CAPLET) [Suspect]
     Indication: ARTHRITIS
     Dosage: UNK UNK, QD
     Dates: start: 20111122
  2. SIMVASTATIN [Concomitant]
  3. ALENDRONATE SODIUM [Concomitant]
  4. AMLODIPINE [Concomitant]
  5. METOPROLOL TARTRATE [Concomitant]
  6. LEVOTHYROXINE SODIUM [Concomitant]

REACTIONS (1)
  - NO ADVERSE EVENT [None]
